FAERS Safety Report 14353848 (Version 1)
Quarter: 2018Q1

REPORT INFORMATION
  Report Type: Spontaneous
  Country: US (occurrence: US)
  Receive Date: 20180105
  Receipt Date: 20180105
  Transmission Date: 20180509
  Serious: Yes (Other)
  Sender: FDA-Public Use
  Company Number: US-CIPLA LTD.-2017US30669

PATIENT

DRUGS (12)
  1. ERIBULIN [Suspect]
     Active Substance: ERIBULIN
     Indication: METASTASES TO SKIN
     Dosage: UNK
     Route: 065
     Dates: start: 201402, end: 201501
  2. IXABEPILONE [Suspect]
     Active Substance: IXABEPILONE
     Indication: METASTASES TO SKIN
     Dosage: UNK
     Route: 065
     Dates: start: 201502
  3. GEMCITABINE [Suspect]
     Active Substance: GEMCITABINE\GEMCITABINE HYDROCHLORIDE
     Indication: METASTASES TO SKIN
     Dosage: UNK, 6 CYCLES
     Route: 065
  4. GEMCITABINE [Suspect]
     Active Substance: GEMCITABINE\GEMCITABINE HYDROCHLORIDE
     Indication: NEOPLASM RECURRENCE
     Dosage: UNK, 3 CYCLES
     Route: 065
     Dates: start: 201509
  5. PACLITAXEL. [Suspect]
     Active Substance: PACLITAXEL
     Indication: METASTASES TO SKIN
     Dosage: UNK
     Route: 065
  6. CARBOPLATIN. [Suspect]
     Active Substance: CARBOPLATIN
     Indication: METASTASES TO SKIN
     Dosage: UNK, 6 CYCLES
     Route: 065
  7. CAPECITABINE. [Suspect]
     Active Substance: CAPECITABINE
     Indication: METASTASES TO SKIN
     Dosage: UNK
     Route: 065
  8. CYCLOPHOSPHAMIDE. [Suspect]
     Active Substance: CYCLOPHOSPHAMIDE
     Indication: INVASIVE DUCTAL BREAST CARCINOMA
     Dosage: UNK, 6 CYCLES
     Route: 065
     Dates: start: 2008
  9. DOXORUBICIN [Suspect]
     Active Substance: DOXORUBICIN
     Indication: METASTASES TO BONE
     Dosage: UNK, LIPOSOMAL, 3 CYCLES
     Route: 065
     Dates: start: 201507
  10. DENOSUMAB [Suspect]
     Active Substance: DENOSUMAB
     Indication: METASTASES TO SKIN
     Dosage: UNK
     Route: 065
  11. CARBOPLATIN. [Suspect]
     Active Substance: CARBOPLATIN
     Indication: NEOPLASM RECURRENCE
  12. DOCETAXEL. [Suspect]
     Active Substance: DOCETAXEL
     Indication: INVASIVE DUCTAL BREAST CARCINOMA
     Dosage: UNK, 6 CYCLES
     Route: 065
     Dates: start: 2008

REACTIONS (4)
  - Metastases to bone [Unknown]
  - Neoplasm recurrence [Unknown]
  - Thrombocytopenia [Unknown]
  - Pathological fracture [Unknown]

NARRATIVE: CASE EVENT DATE: 2015
